FAERS Safety Report 4557338-7 (Version None)
Quarter: 2005Q1

REPORT INFORMATION
  Report Type: 
  Country: None (occurrence: None)
  Receive Date: 20050119
  Receipt Date: 20050119
  Transmission Date: 20050727
  Serious: Yes (Hospitalization)
  Sender: FDA-Public Use
  Company Number: None

PATIENT
  Age: 56 Year
  Sex: Male
  Weight: 57.1532 kg

DRUGS (6)
  1. TENOFOVIR   300MG   GILEAD SCIENCE [Suspect]
     Indication: HIV INFECTION
     Dosage: 300MG   QDAY   ORAL
     Route: 048
     Dates: start: 20020524, end: 20041101
  2. LOPINAVIR/RITONAVIR [Concomitant]
  3. M.V.I. [Concomitant]
  4. STAVUDINE [Concomitant]
  5. ALBUTEROL [Concomitant]
  6. EFAVIRENZ [Concomitant]

REACTIONS (7)
  - ASTHENIA [None]
  - DRUG TOXICITY [None]
  - FANCONI SYNDROME ACQUIRED [None]
  - HYPOKALAEMIA [None]
  - HYPOPHOSPHATAEMIA [None]
  - MYOPATHY [None]
  - RENAL FAILURE ACUTE [None]
